FAERS Safety Report 4714049-2 (Version None)
Quarter: 2005Q3

REPORT INFORMATION
  Report Type: 
  Country: None (occurrence: None)
  Receive Date: 20050713
  Receipt Date: 20050713
  Transmission Date: 20060218
  Serious: No
  Sender: FDA-Public Use
  Company Number: None

PATIENT
  Age: 79 Year
  Sex: Male

DRUGS (1)
  1. CIPRO [Suspect]
     Dosage: 400 MG Q12H INTRAVENOU
     Route: 042

REACTIONS (1)
  - PLATELET COUNT DECREASED [None]
